FAERS Safety Report 4690543-8 (Version None)
Quarter: 2005Q2

REPORT INFORMATION
  Report Type: 
  Country: None (occurrence: None)
  Receive Date: 20050615
  Receipt Date: 20050608
  Transmission Date: 20051028
  Serious: Yes (Hospitalization)
  Sender: FDA-Public Use
  Company Number: AU-MERCK-0506AUS00119

PATIENT
  Age: 79 Year
  Sex: Male

DRUGS (5)
  1. ALDOMET [Suspect]
     Route: 048
     Dates: start: 20050501
  2. ALDOMET [Suspect]
     Route: 048
     Dates: start: 20050607, end: 20050608
  3. FELODIPINE [Concomitant]
     Route: 065
  4. METOPROLOL TARTRATE [Concomitant]
     Route: 065
  5. NITROGLYCERIN [Concomitant]
     Route: 065

REACTIONS (2)
  - CHILLS [None]
  - PYREXIA [None]
